FAERS Safety Report 8741818 (Version 2)
Quarter: 2013Q4

REPORT INFORMATION
  Report Type: Report from Study
  Country: JP (occurrence: JP)
  Receive Date: 20120824
  Receipt Date: 20131031
  Transmission Date: 20140711
  Serious: Yes (Other)
  Sender: FDA-Public Use
  Company Number: JP-009507513-2012SP017031

PATIENT
  Age: 62 Year
  Sex: Female
  Weight: 52 kg

DRUGS (9)
  1. PEGINTERFERON ALFA-2B [Suspect]
     Indication: HEPATITIS C
     Dosage: 1.5 ?G/KG, QW
     Route: 058
     Dates: start: 20120202, end: 20120223
  2. PEGINTERFERON ALFA-2B [Suspect]
     Dosage: 1.5 ?G/KG, QW
     Route: 058
     Dates: start: 20120329, end: 20120712
  3. REBETOL [Suspect]
     Indication: HEPATITIS C
     Dosage: 600 MG, QD
     Route: 048
     Dates: start: 20120202, end: 20120222
  4. REBETOL [Suspect]
     Dosage: 200 MG, QD
     Route: 048
     Dates: start: 20120223, end: 20120229
  5. REBETOL [Suspect]
     Dosage: 400 MG, QD
     Route: 048
     Dates: start: 20120329
  6. REBETOL [Suspect]
     Dosage: 200 MG, QD
     Route: 048
     Dates: start: 20120510, end: 20120718
  7. TELAVIC [Suspect]
     Indication: HEPATITIS C
     Dosage: 2250 MG, QD
     Route: 048
     Dates: start: 20120202, end: 20120301
  8. ATARAX P [Concomitant]
     Indication: PRURIGO
     Dosage: 75 MG, QD
     Route: 048
     Dates: start: 20120223, end: 20120229
  9. ALLELOCK [Concomitant]
     Indication: PRURIGO
     Dosage: FORMULATION: POR
     Route: 048
     Dates: start: 20120301, end: 20120308

REACTIONS (1)
  - Anaemia [Recovered/Resolved]
